FAERS Safety Report 5822062-7 (Version None)
Quarter: 2008Q3

REPORT INFORMATION
  Report Type: 
  Country: None (occurrence: None)
  Receive Date: 20080722
  Receipt Date: 20080722
  Transmission Date: 20090109
  Serious: Yes (Hospitalization)
  Sender: FDA-Public Use
  Company Number: None

PATIENT
  Sex: Male
  Weight: 84 kg

DRUGS (3)
  1. MERCAPTOPURINE [Suspect]
     Dosage: 125 MG
     Dates: end: 20080710
  2. METHOTREXATE [Suspect]
     Dosage: 40 MG
     Dates: end: 20080707
  3. VINCRISTINE SULFATE [Suspect]
     Dosage: 2 MG
     Dates: end: 20080630

REACTIONS (1)
  - FEBRILE NEUTROPENIA [None]
